FAERS Safety Report 16724890 (Version 5)
Quarter: 2020Q2

REPORT INFORMATION
  Report Type: Spontaneous
  Country: US (occurrence: US)
  Receive Date: 20190821
  Receipt Date: 20200429
  Transmission Date: 20200713
  Serious: Yes (Other)
  Sender: FDA-Public Use
  Company Number: US-PFIZER INC-2019357174

PATIENT
  Age: 65 Year
  Sex: Male

DRUGS (1)
  1. INSPRA [Suspect]
     Active Substance: EPLERENONE
     Indication: GYNAECOMASTIA
     Dosage: 50 MG, 2X/DAY, [2 TAB PO (ORAL) BID (TWICE A DAY) FOR 90 DAYS]
     Route: 048
     Dates: start: 20190510

REACTIONS (5)
  - Condition aggravated [Unknown]
  - Loss of personal independence in daily activities [Unknown]
  - Off label use [Unknown]
  - Heart disease congenital [Unknown]
  - Drug ineffective for unapproved indication [Unknown]

NARRATIVE: CASE EVENT DATE: 2019
